FAERS Safety Report 16525111 (Version 1)
Quarter: 2019Q3

REPORT INFORMATION
  Report Type: Report from Study
  Country: None (occurrence: US)
  Receive Date: 20190703
  Receipt Date: 20190703
  Transmission Date: 20191004
  Serious: Yes (Other)
  Sender: FDA-Public Use
  Company Number: US-ABBVIE-19K-163-2839893-00

PATIENT
  Sex: Male

DRUGS (1)
  1. VENCLEXTA [Suspect]
     Active Substance: VENETOCLAX
     Indication: MANTLE CELL LYMPHOMA
     Dosage: TAKE 1-50 MG TABLET ONCE DAILY WITH 2-10MG TABLETS FOR 70MG DAILY AFTER TITRATION/DAY 21
     Route: 048

REACTIONS (1)
  - Hospice care [Unknown]
